FAERS Safety Report 9322402 (Version 3)
Quarter: 2013Q3

REPORT INFORMATION
  Report Type: Spontaneous
  Country: IT (occurrence: IT)
  Receive Date: 20130531
  Receipt Date: 20130801
  Transmission Date: 20140515
  Serious: Yes (Hospitalization)
  Sender: FDA-Public Use
  Company Number: CHPA2013IT009145

PATIENT
  Age: 72 Year
  Sex: Female

DRUGS (2)
  1. IBUPROFEN [Suspect]
     Indication: OSTEOARTHRITIS
     Dosage: 1200 MG, QD
     Route: 048
     Dates: start: 20130228, end: 20130301
  2. ACETYLSALICYLIC ACID [Suspect]
     Indication: OSTEOARTHRITIS
     Dosage: 100 MG, QD
     Route: 048
     Dates: start: 20130101, end: 20130301

REACTIONS (2)
  - Gastric ulcer perforation [Recovered/Resolved]
  - Haematemesis [Recovered/Resolved]
